FAERS Safety Report 13800537 (Version 1)
Quarter: 2017Q3

REPORT INFORMATION
  Report Type: Spontaneous
  Country: FR (occurrence: FR)
  Receive Date: 20170727
  Receipt Date: 20170727
  Transmission Date: 20171127
  Serious: Yes (Other)
  Sender: FDA-Public Use
  Company Number: FR-BAYER-2017-138423

PATIENT
  Age: 29 Year
  Sex: Female

DRUGS (1)
  1. MIRENA [Suspect]
     Active Substance: LEVONORGESTREL
     Indication: CONTRACEPTION
     Dosage: 20 MCG/24HR, CONT
     Route: 015
     Dates: start: 20130331, end: 20170410

REACTIONS (6)
  - Pain [Unknown]
  - Vision blurred [Recovering/Resolving]
  - Irritability [Unknown]
  - Weight increased [Unknown]
  - Vertigo [Unknown]
  - Loss of libido [Unknown]

NARRATIVE: CASE EVENT DATE: 201403
